FAERS Safety Report 20927777 (Version 1)
Quarter: 2022Q2

REPORT INFORMATION
  Report Type: Spontaneous
  Country: US (occurrence: US)
  Receive Date: 20220607
  Receipt Date: 20220607
  Transmission Date: 20220721
  Serious: No
  Sender: FDA-Public Use
  Company Number: US-PERRIGO-21US032341

PATIENT
  Age: 75 Year
  Sex: Female
  Weight: 58.503 kg

DRUGS (1)
  1. MINOXIDIL [Suspect]
     Active Substance: MINOXIDIL
     Indication: Alopecia
     Dosage: 1/2 CAPFUL, QD
     Route: 061
     Dates: start: 202111, end: 202112

REACTIONS (4)
  - Condition aggravated [Recovering/Resolving]
  - Application site pain [Recovering/Resolving]
  - Product administered at inappropriate site [Recovering/Resolving]
  - Product administration error [Recovered/Resolved]

NARRATIVE: CASE EVENT DATE: 20211101
